FAERS Safety Report 7214989-9 (Version None)
Quarter: 2011Q1

REPORT INFORMATION
  Report Type: 
  Country: None (occurrence: None)
  Receive Date: 20110107
  Receipt Date: 20100628
  Transmission Date: 20110831
  Serious: No
  Sender: FDA-Public Use
  Company Number: A0867417A

PATIENT
  Age: 65 Year
  Sex: Female

DRUGS (4)
  1. BUMEX [Concomitant]
  2. VALIUM [Concomitant]
  3. ZYRTEC [Concomitant]
  4. LOVAZA [Suspect]
     Dosage: 4CAP PER DAY
     Route: 048
     Dates: start: 20080101

REACTIONS (4)
  - ABDOMINAL DISTENSION [None]
  - FLATULENCE [None]
  - GASTROINTESTINAL PAIN [None]
  - NAUSEA [None]
